FAERS Safety Report 12754371 (Version 2)
Quarter: 2016Q4

REPORT INFORMATION
  Report Type: Spontaneous
  Country: US (occurrence: US)
  Receive Date: 20160916
  Receipt Date: 20161226
  Transmission Date: 20170207
  Serious: Yes (Hospitalization, Other)
  Sender: FDA-Public Use
  Company Number: PHEH2016US023001

PATIENT
  Age: 78 Year
  Sex: Male

DRUGS (3)
  1. ZOMETA [Suspect]
     Active Substance: ZOLEDRONIC ACID
     Indication: METASTATIC RENAL CELL CARCINOMA
     Dosage: UNK
     Route: 065
  2. MULTI VIT [Concomitant]
     Indication: PRODUCT USED FOR UNKNOWN INDICATION
     Route: 065
  3. SUTENT [Suspect]
     Active Substance: SUNITINIB MALATE
     Indication: METASTATIC RENAL CELL CARCINOMA
     Dosage: 50 MG, 2 WEEKS ON/ 1 WEEK OFF
     Route: 065
     Dates: start: 20160629

REACTIONS (14)
  - Hypersomnia [Not Recovered/Not Resolved]
  - White blood cell count decreased [Unknown]
  - Musculoskeletal chest pain [Unknown]
  - Arthralgia [Not Recovered/Not Resolved]
  - Musculoskeletal pain [Not Recovered/Not Resolved]
  - Fatigue [Not Recovered/Not Resolved]
  - Bone neoplasm [Not Recovered/Not Resolved]
  - Decreased appetite [Unknown]
  - Pain [Not Recovered/Not Resolved]
  - Neck pain [Not Recovered/Not Resolved]
  - Back pain [Not Recovered/Not Resolved]
  - Oral pain [Not Recovered/Not Resolved]
  - Upper limb fracture [Unknown]
  - Dry mouth [Unknown]

NARRATIVE: CASE EVENT DATE: 201603
